FAERS Safety Report 9417653 (Version 2)
Quarter: 2013Q3

REPORT INFORMATION
  Report Type: Spontaneous
  Country: DE (occurrence: DE)
  Receive Date: 20130724
  Receipt Date: 20130725
  Transmission Date: 20140515
  Serious: Yes (Other)
  Sender: FDA-Public Use
  Company Number: DE-PFIZER INC-2013214085

PATIENT
  Age: 20 Year
  Sex: Male

DRUGS (10)
  1. VENLAFAXINE HCL [Suspect]
     Indication: ANXIETY
     Dosage: 150 MG, UNK
  2. VENLAFAXINE HCL [Suspect]
     Indication: DEPRESSION
     Dosage: 225 MG, UNK
  3. VENLAFAXINE HCL [Suspect]
     Dosage: 225 MG, UNK (RESTARTED))
  4. TAFIL [Suspect]
     Dosage: UNK
  5. TAVOR [Suspect]
     Dosage: 40 MG, UNK
  6. TAVOR [Suspect]
     Dosage: 10 MG, UNK
  7. TREVILOR RETARD [Suspect]
     Indication: ANXIETY
     Dosage: 75 MG, 1X/DAY
     Dates: start: 201112
  8. TREVILOR RETARD [Suspect]
     Indication: DEPRESSION
     Dosage: 150 MG, 1X/DAY
  9. CYMBALTA [Suspect]
     Dosage: UNK
  10. ZYPREXA [Suspect]
     Dosage: UNK

REACTIONS (17)
  - Suicidal ideation [Unknown]
  - Cognitive disorder [Unknown]
  - Depression [Unknown]
  - Blood cholesterol increased [Unknown]
  - Nausea [Unknown]
  - Headache [Unknown]
  - Tremor [Unknown]
  - Hyperhidrosis [Unknown]
  - Palpitations [Unknown]
  - Paraesthesia [Unknown]
  - Vomiting [Unknown]
  - Diarrhoea [Unknown]
  - Dizziness [Unknown]
  - Drug withdrawal syndrome [Unknown]
  - Weight increased [Unknown]
  - Feeling abnormal [Unknown]
  - Drug ineffective [Unknown]
